FAERS Safety Report 5793201-1 (Version None)
Quarter: 2008Q2

REPORT INFORMATION
  Report Type: 
  Country: None (occurrence: None)
  Receive Date: 20080627
  Receipt Date: 20080618
  Transmission Date: 20081010
  Serious: Yes (Hospitalization, Other)
  Sender: FDA-Public Use
  Company Number: GB-JNJFOC-20080604673

PATIENT
  Age: 6 Decade
  Sex: Female
  Weight: 62 kg

DRUGS (6)
  1. REMICADE [Suspect]
     Indication: RHEUMATOID ARTHRITIS
     Route: 042
  2. PREDNISOLONE [Concomitant]
  3. ACETAMINOPHEN W/ CODEINE [Concomitant]
  4. FOSAMAX [Concomitant]
  5. SIMVASTATIN [Concomitant]
  6. METHOTREXATE [Concomitant]

REACTIONS (2)
  - BLADDER REPAIR [None]
  - HYSTERECTOMY [None]
